FAERS Safety Report 6488024-4 (Version None)
Quarter: 2009Q4

REPORT INFORMATION
  Report Type: 
  Country: None (occurrence: None)
  Receive Date: 20091210
  Receipt Date: 20091201
  Transmission Date: 20100525
  Serious: Yes (Other)
  Sender: FDA-Public Use
  Company Number: PHHY2009JP47527

PATIENT
  Sex: Female
  Weight: 51 kg

DRUGS (4)
  1. ZOMETA [Suspect]
     Indication: METASTASES TO BONE
     Dosage: 4 MG PER ADMINISTRATION
     Route: 042
     Dates: start: 20060803, end: 20081106
  2. ZOMETA [Suspect]
     Dosage: 4 MG PER ADMINISTRATION
     Route: 042
     Dates: start: 20090925
  3. AREDIA [Suspect]
     Indication: METASTASES TO BONE
     Dosage: UNK
     Route: 042
     Dates: start: 20060629
  4. HERCEPTIN [Concomitant]
     Dosage: WEEKLY DOSE

REACTIONS (10)
  - BACTERIAL INFECTION [None]
  - GINGIVAL ERYTHEMA [None]
  - GINGIVAL PAIN [None]
  - GINGIVAL SWELLING [None]
  - GINGIVITIS [None]
  - OSTEOMYELITIS [None]
  - PRIMARY SEQUESTRUM [None]
  - PURULENT DISCHARGE [None]
  - SEQUESTRECTOMY [None]
  - TOOTH EXTRACTION [None]
